FAERS Safety Report 7831842-8 (Version None)
Quarter: 2011Q4

REPORT INFORMATION
  Report Type: 
  Country: None (occurrence: None)
  Receive Date: 20111021
  Receipt Date: 20111018
  Transmission Date: 20120403
  Serious: Yes (Other)
  Sender: FDA-Public Use
  Company Number: US-PFIZER INC-2011228380

PATIENT
  Sex: Female

DRUGS (2)
  1. CHANTIX [Suspect]
     Indication: SMOKING CESSATION THERAPY
     Dosage: UNK
     Dates: start: 20110907, end: 20110901
  2. CHANTIX [Suspect]
     Dosage: UNK
     Dates: start: 20110901, end: 20110101

REACTIONS (5)
  - ABNORMAL DREAMS [None]
  - CHEST PAIN [None]
  - TOBACCO USER [None]
  - GASTROENTERITIS VIRAL [None]
  - DRUG INEFFECTIVE [None]
